FAERS Safety Report 11334239 (Version 1)
Quarter: 2015Q3

REPORT INFORMATION
  Report Type: Report from Study
  Country: CN (occurrence: CN)
  Receive Date: 20150803
  Receipt Date: 20150803
  Transmission Date: 20151125
  Serious: Yes (Other)
  Sender: FDA-Public Use
  Company Number: CN-BAXALTA-2015BAX029096

PATIENT
  Age: 15 Year
  Weight: 45 kg

DRUGS (4)
  1. OCTOCOG ALFA; BAXJECT UNSPECIFIED [Suspect]
     Active Substance: ANTIHEMOPHILIC FACTOR, HUMAN RECOMBINANT
     Dosage: 750 IU, 3X A WEEK
     Route: 065
  2. OCTOCOG ALFA; BAXJECT UNSPECIFIED [Suspect]
     Active Substance: ANTIHEMOPHILIC FACTOR, HUMAN RECOMBINANT
     Indication: HAEMOPHILIA
     Dosage: 250 IU, 2X A WEEK
     Route: 065
     Dates: start: 20140307
  3. OCTOCOG ALFA; BAXJECT UNSPECIFIED [Suspect]
     Active Substance: ANTIHEMOPHILIC FACTOR, HUMAN RECOMBINANT
     Indication: PROPHYLAXIS
     Dosage: LOW DOSAGE LONG TERM REGULAR INJECTION
     Route: 065
  4. KOGENATE FS [Concomitant]
     Active Substance: ANTIHEMOPHILIC FACTOR, HUMAN RECOMBINANT
     Indication: HAEMOPHILIA
     Route: 065

REACTIONS (5)
  - Unevaluable event [Unknown]
  - Haemorrhage [Unknown]
  - Drug dose omission [Unknown]
  - Haemarthrosis [Unknown]
  - Arthralgia [Unknown]
